FAERS Safety Report 6976825-5 (Version None)
Quarter: 2010Q3

REPORT INFORMATION
  Report Type: 
  Country: None (occurrence: None)
  Receive Date: 20100910
  Receipt Date: 20100901
  Transmission Date: 20110219
  Serious: Yes (Death, Hospitalization)
  Sender: FDA-Public Use
  Company Number: A0862313A

PATIENT
  Age: 62 Year
  Sex: Male

DRUGS (2)
  1. AVANDIA [Suspect]
     Dosage: 4MG THREE TIMES PER DAY
     Route: 048
     Dates: start: 20020729, end: 20020829
  2. AVANDAMET [Suspect]
     Dosage: 2MG THREE TIMES PER DAY
     Dates: start: 20020729, end: 20080914

REACTIONS (3)
  - CONVULSION [None]
  - HYPOXIC-ISCHAEMIC ENCEPHALOPATHY [None]
  - MYOCARDIAL INFARCTION [None]
